FAERS Safety Report 12827342 (Version 1)
Quarter: 2016Q4

REPORT INFORMATION
  Report Type: Spontaneous
  Country: US (occurrence: US)
  Receive Date: 20161007
  Receipt Date: 20161007
  Transmission Date: 20170207
  Serious: No
  Sender: FDA-Public Use
  Company Number: US-TARO-2015TAR00878

PATIENT
  Sex: Male

DRUGS (2)
  1. PHENYTOIN SODIUM EXTENDED [Suspect]
     Active Substance: PHENYTOIN SODIUM
     Indication: EPILEPSY
  2. PHENYTOIN SODIUM EXTENDED [Suspect]
     Active Substance: PHENYTOIN SODIUM
     Indication: SEIZURE
     Dosage: 200 MG, 2X/DAY
     Route: 048
     Dates: start: 2012

REACTIONS (2)
  - Dysgeusia [Not Recovered/Not Resolved]
  - Breath odour [Not Recovered/Not Resolved]
